FAERS Safety Report 10099498 (Version 1)
Quarter: 2014Q2

REPORT INFORMATION
  Report Type: Spontaneous
  Country: IT (occurrence: IT)
  Receive Date: 20140423
  Receipt Date: 20140423
  Transmission Date: 20141212
  Serious: Yes (Other)
  Sender: FDA-Public Use
  Company Number: IT-ABBVIE-14P-083-1228816-00

PATIENT
  Age: 53 Year
  Sex: Female

DRUGS (4)
  1. DEPAKIN CHRONO [Suspect]
     Indication: DRUG ABUSE
     Dosage: EXTENDED RELEASE
     Route: 048
     Dates: start: 20140304, end: 20140304
  2. FLUOXETINE [Suspect]
     Indication: DRUG ABUSE
     Route: 048
     Dates: start: 20140304, end: 20140304
  3. EN [Suspect]
     Indication: DRUG ABUSE
     Route: 048
     Dates: start: 20140304, end: 20140304
  4. HALCION [Suspect]
     Indication: DRUG ABUSE
     Route: 048
     Dates: start: 20140304, end: 20140304

REACTIONS (2)
  - Drug abuse [Recovering/Resolving]
  - Sopor [Recovering/Resolving]
